FAERS Safety Report 9444405 (Version 1)
Quarter: 2013Q3

REPORT INFORMATION
  Report Type: Spontaneous
  Country: DE (occurrence: DE)
  Receive Date: 20130807
  Receipt Date: 20130807
  Transmission Date: 20140515
  Serious: Yes (Other)
  Sender: FDA-Public Use
  Company Number: DE-ALEXION PHARMACEUTICALS INC.-A201301792

PATIENT
  Age: 62 Year
  Sex: 0

DRUGS (3)
  1. SOLIRIS 300MG [Suspect]
     Indication: HAEMOLYTIC URAEMIC SYNDROME
     Dosage: 600 MG, SINGLE
     Route: 042
     Dates: start: 20130619, end: 20130619
  2. SOLIRIS 300MG [Suspect]
     Dosage: 1200 MG, SINGLE
     Route: 042
     Dates: start: 20130624, end: 20130624
  3. SOLIRIS 300MG [Suspect]
     Dosage: 900 MG, SINGLE
     Route: 042
     Dates: start: 20130703, end: 20130703

REACTIONS (5)
  - Platelet count increased [Recovering/Resolving]
  - Blood creatinine abnormal [Unknown]
  - Blood lactate dehydrogenase increased [Recovering/Resolving]
  - Drug ineffective [Unknown]
  - Inappropriate schedule of drug administration [Unknown]
